FAERS Safety Report 20365217 (Version 2)
Quarter: 2022Q1

REPORT INFORMATION
  Report Type: Report from Study
  Country: CN (occurrence: None)
  Receive Date: 20220122
  Receipt Date: 20220223
  Transmission Date: 20220423
  Serious: Yes (Hospitalization)
  Sender: FDA-Public Use
  Company Number: CN-ROCHE-2957188

PATIENT
  Age: 67 Year
  Sex: Male
  Weight: 58.9 kg

DRUGS (8)
  1. ATEZOLIZUMAB [Suspect]
     Active Substance: ATEZOLIZUMAB
     Indication: Malignant neoplasm of thymus
     Dosage: DATE OF MOST RECENT DOSE OF DRUG- 28/OCT/2021?DATE OF MOST RECENT DOSE OF DRUG-30/DEC/2021
     Route: 041
     Dates: start: 20211007
  2. ASPIRIN [Concomitant]
     Active Substance: ASPIRIN
     Dates: start: 2011
  3. ATORVASTATIN [Concomitant]
     Active Substance: ATORVASTATIN
     Dates: start: 2011
  4. METOPROLOL SUCCINATE [Concomitant]
     Active Substance: METOPROLOL SUCCINATE
     Dates: start: 202106
  5. AMLODIPINE BESYLATE [Concomitant]
     Active Substance: AMLODIPINE BESYLATE
     Dates: start: 201112
  6. TAFLUPROST [Concomitant]
     Active Substance: TAFLUPROST
     Dates: start: 2017
  7. BRINZOLAMIDE [Concomitant]
     Active Substance: BRINZOLAMIDE
     Dates: start: 2017
  8. ESOMEPRAZOLE SODIUM [Concomitant]
     Active Substance: ESOMEPRAZOLE SODIUM
     Dates: start: 20211028, end: 20211028

REACTIONS (2)
  - Colitis [Unknown]
  - Pneumonia [Not Recovered/Not Resolved]

NARRATIVE: CASE EVENT DATE: 20211018
